FAERS Safety Report 7227775-0 (Version None)
Quarter: 2011Q1

REPORT INFORMATION
  Report Type: 
  Country: None (occurrence: None)
  Receive Date: 20110111
  Receipt Date: 20110111
  Transmission Date: 20110831
  Serious: Yes (Life-Threatening, Hospitalization)
  Sender: FDA-Public Use
  Company Number: None

PATIENT
  Age: 77 Year
  Sex: Male

DRUGS (16)
  1. METOPROLOL TARTRATE [Concomitant]
  2. ROZEREM [Concomitant]
  3. VERAPAMIL [Concomitant]
  4. HYDROCODONE BITARTRATE + ACETAMINOPHEN [Suspect]
  5. ASPIRIN [Concomitant]
  6. ERGOCALCIFEROL [Concomitant]
  7. TAMSULOSIN HCL [Concomitant]
  8. FUROSEMIDE [Concomitant]
  9. POTASSIUM CHLORIDE [Concomitant]
  10. OMEPRAZOLE [Concomitant]
  11. PLAVIX [Concomitant]
  12. AMIODARONE HCL [Suspect]
     Indication: ATRIAL FIBRILLATION
     Dosage: 200 MG ONCE DAILY PO
     Route: 048
  13. AMIODARONE HCL [Suspect]
     Indication: CARDIAC FAILURE
     Dosage: 200 MG ONCE DAILY PO
     Route: 048
  14. LEVOTHYROXINE SODIUM [Concomitant]
  15. EPOETIN [Suspect]
  16. TEMAZEPAM [Concomitant]

REACTIONS (1)
  - HEPATIC ENZYME ABNORMAL [None]
